FAERS Safety Report 24548756 (Version 1)
Quarter: 2024Q4

REPORT INFORMATION
  Report Type: Spontaneous
  Country: FR (occurrence: FR)
  Receive Date: 20241025
  Receipt Date: 20241025
  Transmission Date: 20250115
  Serious: Yes (Hospitalization, Disabling)
  Sender: ROCHE
  Company Number: FR-ROCHE-10000109868

PATIENT
  Age: 80 Year
  Sex: Male

DRUGS (3)
  1. VABYSMO [Suspect]
     Active Substance: FARICIMAB-SVOA
     Indication: Age-related macular degeneration
     Route: 065
     Dates: start: 20240828
  2. EYLEA [Concomitant]
     Active Substance: AFLIBERCEPT
  3. CELESTENE [Concomitant]
     Route: 057

REACTIONS (6)
  - Inflammation [Unknown]
  - Visual acuity reduced [Unknown]
  - Keratic precipitates [Unknown]
  - Anterior chamber flare [Unknown]
  - Hyalosis asteroid [Unknown]
  - Eye disorder [Unknown]
